FAERS Safety Report 13566080 (Version 1)
Quarter: 2017Q2

REPORT INFORMATION
  Report Type: Spontaneous
  Country: US (occurrence: US)
  Receive Date: 20170521
  Receipt Date: 20170521
  Transmission Date: 20170830
  Serious: Yes (Life-Threatening, Hospitalization, Other)
  Sender: FDA-Public Use
  Company Number: US-AMGEN-USASP2017077244

PATIENT
  Age: 61 Year
  Sex: Female

DRUGS (7)
  1. ARANESP [Suspect]
     Active Substance: DARBEPOETIN ALFA
     Indication: PRODUCT USED FOR UNKNOWN INDICATION
     Dosage: 200 MUG, UNK
     Route: 065
     Dates: start: 20090225
  2. ENBREL [Suspect]
     Active Substance: ETANERCEPT
     Indication: PSORIATIC ARTHROPATHY
     Dosage: UNK
     Route: 065
  3. NEUPOGEN [Suspect]
     Active Substance: FILGRASTIM
     Indication: PRODUCT USED FOR UNKNOWN INDICATION
     Dosage: UNK
     Route: 065
     Dates: start: 20090225
  4. ARANESP [Suspect]
     Active Substance: DARBEPOETIN ALFA
     Dosage: 200 MUG, ONCE IN EVERY 2 MONTHS
     Route: 065
  5. HUMIRA [Concomitant]
     Active Substance: ADALIMUMAB
     Indication: PSORIATIC ARTHROPATHY
     Dosage: UNK
  6. ARANESP [Suspect]
     Active Substance: DARBEPOETIN ALFA
     Dosage: 200 MUG, UNK
     Route: 065
  7. METHOTREXATE. [Concomitant]
     Active Substance: METHOTREXATE

REACTIONS (7)
  - Bone marrow transplant [Unknown]
  - Hyperparathyroidism secondary [Unknown]
  - Hospitalisation [Unknown]
  - Bone marrow disorder [Recovering/Resolving]
  - Transfusion [Unknown]
  - Hypertension [Unknown]
  - Renal failure [Unknown]

NARRATIVE: CASE EVENT DATE: 2009
